FAERS Safety Report 8170258-4 (Version None)
Quarter: 2012Q1

REPORT INFORMATION
  Report Type: 
  Country: None (occurrence: None)
  Receive Date: 20120228
  Receipt Date: 20120216
  Transmission Date: 20120608
  Serious: Yes (Other)
  Sender: FDA-Public Use
  Company Number: US-BAYER-2011-114319

PATIENT
  Age: 16 Year
  Sex: Female
  Weight: 90.703 kg

DRUGS (13)
  1. DROSPIRENONE AND ETHINYL ESTRADIOL [Suspect]
     Dosage: UNK
     Dates: start: 20080101, end: 20090101
  2. MILK OF MAGNESIA TAB [Concomitant]
     Indication: CONSTIPATION
     Dosage: UNK
     Dates: start: 20090823
  3. NASACORT [Concomitant]
  4. ZOLOFT [Concomitant]
  5. YAZ [Suspect]
     Dosage: UNK
     Dates: start: 20080101, end: 20090101
  6. PRILOSEC [Concomitant]
  7. UNCODEABLE ^UNCLASSIFIABLE^ [Concomitant]
     Indication: CONSTIPATION
     Dosage: UNK
     Dates: start: 20090823
  8. MACRODANTIN [Concomitant]
  9. BENADRYL [Concomitant]
     Dosage: UNK UNK, PRN
  10. CLARITIN [Concomitant]
  11. NORCO [Concomitant]
     Dosage: UNK, PRN
  12. CYMBALTA [Concomitant]
  13. GLYCEROL 2.6% [Concomitant]
     Indication: CONSTIPATION
     Dosage: UNK
     Route: 054
     Dates: start: 20090823

REACTIONS (4)
  - NAUSEA [None]
  - CHOLECYSTITIS CHRONIC [None]
  - CHOLECYSTECTOMY [None]
  - PAIN [None]
